FAERS Safety Report 20222117 (Version 1)
Quarter: 2021Q4

REPORT INFORMATION
  Report Type: Report from Study
  Country: TR (occurrence: TR)
  Receive Date: 20211223
  Receipt Date: 20211223
  Transmission Date: 20220303
  Serious: Yes (Death, Hospitalization)
  Sender: FDA-Public Use
  Company Number: TR-BIOGEN-2021BI01079793

PATIENT

DRUGS (1)
  1. SPINRAZA [Suspect]
     Active Substance: NUSINERSEN
     Indication: Product used for unknown indication
     Dosage: SPINRAZA 2.4 MG/ML INTRATEKAL ENJEKSIYON I?IN ??ZELTI I?EREN FLAKON (NUSINERSEN)
     Route: 037
     Dates: end: 202103

REACTIONS (2)
  - Respiratory failure [Fatal]
  - Pneumonia [Unknown]
